FAERS Safety Report 25359718 (Version 2)
Quarter: 2025Q4

REPORT INFORMATION
  Report Type: Spontaneous
  Country: VE (occurrence: VE)
  Receive Date: 20250526
  Receipt Date: 20251009
  Transmission Date: 20260118
  Serious: Yes (Other)
  Sender: NOVARTIS
  Company Number: VE-002147023-NVSC2025VE083755

PATIENT
  Sex: Male

DRUGS (1)
  1. GLIVEC [Suspect]
     Active Substance: IMATINIB MESYLATE
     Indication: Chronic myeloid leukaemia
     Dosage: 400 MG, QID, (4X 100MG)
     Route: 065

REACTIONS (6)
  - Nephrolithiasis [Unknown]
  - Limb injury [Unknown]
  - Prostatitis [Unknown]
  - Tendonitis [Unknown]
  - Pain in extremity [Unknown]
  - Tachycardia [Unknown]
